FAERS Safety Report 16689646 (Version 2)
Quarter: 2019Q3

REPORT INFORMATION
  Report Type: Spontaneous
  Country: JP (occurrence: JP)
  Receive Date: 20190809
  Receipt Date: 20190829
  Transmission Date: 20191004
  Serious: Yes (Hospitalization, Other)
  Sender: FDA-Public Use
  Company Number: JP-ASTRAZENECA-2019SE84729

PATIENT
  Age: 73 Year
  Sex: Female
  Weight: 31 kg

DRUGS (15)
  1. ERLOTINIB [Concomitant]
     Active Substance: ERLOTINIB
     Dosage: DOSE UNKNOWN
     Route: 065
     Dates: start: 20151024, end: 20160209
  2. IRESSA [Suspect]
     Active Substance: GEFITINIB
     Indication: NON-SMALL CELL LUNG CANCER
     Route: 048
     Dates: start: 20150901, end: 20151008
  3. ERLOTINIB [Concomitant]
     Active Substance: ERLOTINIB
     Dosage: DOSE UNKNOWN
     Route: 065
     Dates: start: 20160210
  4. DENOSUMAB [Concomitant]
     Active Substance: DENOSUMAB
     Indication: TOOTH EXTRACTION
     Dosage: DOSE UNKNOWN
     Route: 065
     Dates: start: 20150928
  5. MIYA-BM [Concomitant]
     Active Substance: CLOSTRIDIUM BUTYRICUM SPORES STRAIN M-55
     Indication: ABDOMINAL DISCOMFORT
     Route: 048
  6. MOSAPRIDE CITRATE [Concomitant]
     Active Substance: MOSAPRIDE CITRATE
     Indication: ABDOMINAL DISCOMFORT
     Route: 048
  7. TAGRISSO [Suspect]
     Active Substance: OSIMERTINIB
     Indication: NON-SMALL CELL LUNG CANCER
     Route: 048
     Dates: start: 201806
  8. NEXIUM [Concomitant]
     Active Substance: ESOMEPRAZOLE MAGNESIUM
     Indication: PROPHYLAXIS AGAINST GASTROINTESTINAL ULCER
     Route: 048
  9. ASTOMIN [Concomitant]
     Active Substance: DIMEMORFAN
     Dosage: DOSE UNKNOWN
     Route: 065
  10. TARCEVA [Concomitant]
     Active Substance: ERLOTINIB HYDROCHLORIDE
     Dosage: DOSE UNKNOWN
     Route: 065
     Dates: start: 20161017
  11. CELECOX [Concomitant]
     Active Substance: CELECOXIB
     Indication: ANALGESIC THERAPY
     Route: 048
  12. ENALAPRIL [Concomitant]
     Active Substance: ENALAPRIL
     Dosage: DOSE UNKNOWN
     Route: 065
     Dates: start: 20190522
  13. TAGRISSO [Suspect]
     Active Substance: OSIMERTINIB
     Indication: NON-SMALL CELL LUNG CANCER
     Route: 048
     Dates: start: 20180626, end: 20190321
  14. TAGRISSO [Suspect]
     Active Substance: OSIMERTINIB
     Indication: NON-SMALL CELL LUNG CANCER
     Route: 048
     Dates: start: 20190322, end: 20190521
  15. AMLODIN [Concomitant]
     Active Substance: AMLODIPINE BESYLATE
     Dosage: DOSE UNKNOWN
     Route: 065

REACTIONS (15)
  - Malignant neoplasm progression [Unknown]
  - Weight decreased [Unknown]
  - Diarrhoea [Unknown]
  - Cardiomegaly [Unknown]
  - Blood creatine phosphokinase increased [Recovering/Resolving]
  - Anaemia [Unknown]
  - Fall [Unknown]
  - Liver disorder [Recovering/Resolving]
  - Decreased appetite [Unknown]
  - Pyrexia [Unknown]
  - Rhabdomyolysis [Unknown]
  - Metastases to pelvis [Unknown]
  - Pathological fracture [Unknown]
  - Cardiac dysfunction [Recovered/Resolved]
  - Urinary tract infection [Unknown]

NARRATIVE: CASE EVENT DATE: 20150930
